FAERS Safety Report 8805531 (Version 3)
Quarter: 2013Q4

REPORT INFORMATION
  Report Type: Spontaneous
  Country: US (occurrence: US)
  Receive Date: 20120924
  Receipt Date: 20131230
  Transmission Date: 20140711
  Serious: Yes (Hospitalization)
  Sender: FDA-Public Use
  Company Number: US-TEVA-359633USA

PATIENT
  Sex: Male

DRUGS (1)
  1. KETOCONAZOLE [Suspect]
     Indication: FUNGAL SKIN INFECTION

REACTIONS (5)
  - Mania [Unknown]
  - Depression [Unknown]
  - Abnormal behaviour [Unknown]
  - Liver function test abnormal [Unknown]
  - Mental disorder [Unknown]
